FAERS Safety Report 14416553 (Version 2)
Quarter: 2018Q2

REPORT INFORMATION
  Report Type: Spontaneous
  Country: US (occurrence: US)
  Receive Date: 20180122
  Receipt Date: 20180508
  Transmission Date: 20180711
  Serious: Yes (Other)
  Sender: FDA-Public Use
  Company Number: US-AUROBINDO-AUR-APL-2018-002449

PATIENT
  Age: 29 Year
  Sex: Male

DRUGS (5)
  1. PROGESTERONE. [Concomitant]
     Active Substance: PROGESTERONE
     Indication: PRODUCT USED FOR UNKNOWN INDICATION
  2. ESTROGEN [Concomitant]
     Active Substance: ESTROGENS
     Indication: PRODUCT USED FOR UNKNOWN INDICATION
     Route: 030
  3. ESTROGEN [Concomitant]
     Active Substance: ESTROGENS
     Indication: PRODUCT USED FOR UNKNOWN INDICATION
     Dosage: UNK
     Route: 048
  4. SPIRONOLACTONE. [Suspect]
     Active Substance: SPIRONOLACTONE
     Indication: ANTIANDROGEN THERAPY
     Dosage: 100 MG, DAILY
     Route: 065
  5. SPIRONOLACTONE. [Suspect]
     Active Substance: SPIRONOLACTONE
     Indication: ANTIANDROGEN THERAPY
     Dosage: UNK
     Route: 065

REACTIONS (15)
  - Muscle twitching [Unknown]
  - Peripheral sensory neuropathy [Unknown]
  - Muscle atrophy [Unknown]
  - Toxicity to various agents [Unknown]
  - Bulbospinal muscular atrophy congenital [Unknown]
  - Asthenia [Unknown]
  - Resting tremor [Unknown]
  - Fall [Unknown]
  - Loss of personal independence in daily activities [Unknown]
  - Sensorimotor disorder [Unknown]
  - Fatigue [Unknown]
  - Facial paresis [Unknown]
  - Tongue atrophy [Unknown]
  - Muscular weakness [Unknown]
  - Dysphonia [Unknown]
